FAERS Safety Report 9524251 (Version 1)
Quarter: 2013Q3

REPORT INFORMATION
  Report Type: Spontaneous
  Country: US (occurrence: None)
  Receive Date: 20130912
  Receipt Date: 20130912
  Transmission Date: 20140515
  Serious: No
  Sender: FDA-Public Use
  Company Number: None

PATIENT
  Age: 89 None
  Sex: Female

DRUGS (13)
  1. LEVOFLOXACIN [Suspect]
     Indication: URINARY TRACT INFECTION
     Dates: start: 20130825
  2. VERAPAMIL [Concomitant]
  3. METRONIDAZOLE [Concomitant]
  4. VITAMIN D 3 [Concomitant]
  5. OIL OF OREGANO [Concomitant]
  6. METRONIDAZOLE [Concomitant]
  7. ZYFLAMEND [Concomitant]
  8. COENZYME Q10 [Concomitant]
  9. RED OMEGTA 3 KRILL [Concomitant]
  10. ASPIRIN [Concomitant]
  11. HORMON REPLACEMENT [Concomitant]
  12. CHOLESTA CARE [Concomitant]
  13. GLUC HCL [Concomitant]

REACTIONS (1)
  - Pain in extremity [None]
